FAERS Safety Report 10048029 (Version 1)
Quarter: 2014Q1

REPORT INFORMATION
  Report Type: Spontaneous
  Country: US (occurrence: None)
  Receive Date: 20140327
  Receipt Date: 20140327
  Transmission Date: 20141002
  Serious: Yes (Other)
  Sender: FDA-Public Use
  Company Number: ADR-2014-00475

PATIENT
  Age: 48 Year
  Sex: Female

DRUGS (6)
  1. BACLOFEN INTRATHECAL [Suspect]
     Indication: PAIN
  2. FENTANYL [Suspect]
     Indication: PAIN
  3. BUPIVACAINE [Suspect]
  4. MORPHINE [Suspect]
  5. PERCOCET [Suspect]
  6. DILAUDID (ORAL) [Suspect]
     Route: 048

REACTIONS (9)
  - Drug withdrawal syndrome [None]
  - Tremor [None]
  - Hyperhidrosis [None]
  - Pain [None]
  - Dysstasia [None]
  - Malaise [None]
  - Drug ineffective [None]
  - Drug administration error [None]
  - Device alarm issue [None]
